FAERS Safety Report 4534477-8 (Version None)
Quarter: 2004Q4

REPORT INFORMATION
  Report Type: 
  Country: None (occurrence: None)
  Receive Date: 20041221
  Receipt Date: 20041221
  Transmission Date: 20050328
  Serious: No
  Sender: FDA-Public Use
  Company Number: None

PATIENT
  Age: 53 Year
  Sex: Male
  Weight: 81.6475 kg

DRUGS (6)
  1. CRESTOR [Suspect]
     Indication: HIGH DENSITY LIPOPROTEIN ABNORMAL
     Dosage: 10 MG EVERY DAY
     Dates: start: 20040601, end: 20041126
  2. CRESTOR [Suspect]
     Indication: LOW DENSITY LIPOPROTEIN ABNORMAL
     Dosage: 10 MG EVERY DAY
     Dates: start: 20040601, end: 20041126
  3. HUMALOG [Concomitant]
  4. LANTUS [Concomitant]
  5. SYNTHROID [Concomitant]
  6. MAVIK [Concomitant]

REACTIONS (4)
  - DIFFICULTY IN WALKING [None]
  - INVESTIGATION ABNORMAL [None]
  - MUSCLE CRAMP [None]
  - PAIN IN EXTREMITY [None]
